FAERS Safety Report 12777614 (Version 1)
Quarter: 2016Q3

REPORT INFORMATION
  Report Type: Report from Study
  Country: FI (occurrence: FI)
  Receive Date: 20160924
  Receipt Date: 20160924
  Transmission Date: 20161109
  Serious: Yes (Hospitalization)
  Sender: FDA-Public Use
  Company Number: FI-ABBVIE-16K-055-1706503-00

PATIENT
  Sex: Female

DRUGS (1)
  1. DUODOPA [Suspect]
     Active Substance: CARBIDOPA\LEVODOPA
     Indication: PRODUCT USED FOR UNKNOWN INDICATION
     Dosage: CD 3.4; ED 0.6; MD 3.4
     Route: 050
     Dates: start: 2011

REACTIONS (3)
  - General physical health deterioration [Unknown]
  - Vomiting [Recovered/Resolved]
  - Gastrointestinal stoma output decreased [Recovered/Resolved]
